FAERS Safety Report 6417247-5 (Version None)
Quarter: 2009Q4

REPORT INFORMATION
  Report Type: 
  Country: None (occurrence: None)
  Receive Date: 20091027
  Receipt Date: 20091027
  Transmission Date: 20100525
  Serious: Yes (Hospitalization)
  Sender: FDA-Public Use
  Company Number: None

PATIENT
  Age: 53 Year
  Sex: Female
  Weight: 52 kg

DRUGS (14)
  1. INSULIN GLARGINE [Suspect]
     Indication: DIABETES MELLITUS
     Dosage: 25 U SQ QHS
     Route: 058
     Dates: start: 20090827, end: 20090829
  2. INSULIN ASPART [Suspect]
     Indication: DIABETES MELLITUS
     Dosage: 8 U SQ TID W/MEALS
     Route: 058
     Dates: start: 20090827, end: 20090829
  3. ASPIRIN [Concomitant]
  4. CLONIDINE [Concomitant]
  5. DOCUSATE [Concomitant]
  6. METRONIDAZOLE [Concomitant]
  7. FLUCONAZOLE [Concomitant]
  8. HEPARIN [Concomitant]
  9. LEVETIRACETAM [Concomitant]
  10. METOPROLOL [Concomitant]
  11. SENNA [Concomitant]
  12. SIMVASTATIN [Concomitant]
  13. VENLAFAXINE [Concomitant]
  14. LANSOPRAZOLE [Concomitant]

REACTIONS (6)
  - BLOOD GLUCOSE DECREASED [None]
  - CONFUSIONAL STATE [None]
  - CREATININE RENAL CLEARANCE DECREASED [None]
  - DEHYDRATION [None]
  - LETHARGY [None]
  - MENTAL STATUS CHANGES [None]
